FAERS Safety Report 10065625 (Version 1)
Quarter: 2014Q2

REPORT INFORMATION
  Report Type: Spontaneous
  Country: US (occurrence: US)
  Receive Date: 20140408
  Receipt Date: 20140408
  Transmission Date: 20141212
  Serious: No
  Sender: FDA-Public Use
  Company Number: US-PFIZER INC-2014094578

PATIENT
  Age: 88 Year
  Sex: Female

DRUGS (2)
  1. LYRICA [Suspect]
     Dosage: 50 MG, 2X/DAY
  2. LYRICA [Suspect]
     Dosage: 75 MG, 2X/DAY

REACTIONS (6)
  - Anxiety [Unknown]
  - Restlessness [Unknown]
  - Irritability [Unknown]
  - Panic attack [Unknown]
  - Abnormal dreams [Unknown]
  - Agitation [Unknown]
